FAERS Safety Report 14205397 (Version 1)
Quarter: 2017Q4

REPORT INFORMATION
  Report Type: Spontaneous
  Country: US (occurrence: US)
  Receive Date: 20171120
  Receipt Date: 20171120
  Transmission Date: 20180321
  Serious: Yes (Other)
  Sender: FDA-Public Use
  Company Number: US-GILEAD-2017-0305475

PATIENT
  Age: 60 Year
  Sex: Female

DRUGS (2)
  1. SUNITINIB [Concomitant]
     Active Substance: SUNITINIB
  2. VIREAD [Suspect]
     Active Substance: TENOFOVIR DISOPROXIL FUMARATE
     Indication: HEPATITIS B
     Route: 065

REACTIONS (5)
  - Gastrointestinal stromal tumour [Unknown]
  - Blood creatinine increased [Unknown]
  - Osteopenia [Unknown]
  - Back pain [Unknown]
  - Proteinuria [Unknown]
